FAERS Safety Report 18098413 (Version 3)
Quarter: 2021Q1

REPORT INFORMATION
  Report Type: Spontaneous
  Country: US (occurrence: US)
  Receive Date: 20200731
  Receipt Date: 20210303
  Transmission Date: 20210419
  Serious: No
  Sender: FDA-Public Use
  Company Number: US-PFIZER INC-2020289343

PATIENT
  Age: 55 Year
  Sex: Male
  Weight: 136.08 kg

DRUGS (1)
  1. PHENELZINE SULFATE. [Suspect]
     Active Substance: PHENELZINE SULFATE
     Indication: DEPRESSION
     Dosage: 45 MG, DAILY (15 MG EACH TIME, TOTAL OF 45 MG A DAY)
     Route: 048

REACTIONS (1)
  - Therapeutic product effect incomplete [Unknown]
